FAERS Safety Report 18449927 (Version 1)
Quarter: 2020Q4

REPORT INFORMATION
  Report Type: Spontaneous
  Country: AU (occurrence: AU)
  Receive Date: 20201030
  Receipt Date: 20201030
  Transmission Date: 20210114
  Serious: Yes (Other)
  Sender: FDA-Public Use
  Company Number: AU-ELI_LILLY_AND_COMPANY-AU202010009119

PATIENT
  Age: 2 Year
  Sex: Female
  Weight: 13 kg

DRUGS (1)
  1. ZYPREXA [Suspect]
     Active Substance: OLANZAPINE
     Indication: PRODUCT USED FOR UNKNOWN INDICATION
     Dosage: UNK UNK, UNKNOWN
     Route: 065
     Dates: start: 20200409, end: 20200409

REACTIONS (5)
  - Accidental overdose [Unknown]
  - Accidental exposure to product by child [Unknown]
  - Agitation [Unknown]
  - Somnolence [Unknown]
  - Irritability [Unknown]

NARRATIVE: CASE EVENT DATE: 20200409
